FAERS Safety Report 19984724 (Version 1)
Quarter: 2021Q4

REPORT INFORMATION
  Report Type: Spontaneous
  Country: US (occurrence: US)
  Receive Date: 20211020
  Receipt Date: 20211020
  Transmission Date: 20220303
  Serious: Yes (Hospitalization)
  Sender: FDA-Public Use
  Company Number: None

PATIENT
  Age: 65 Year
  Sex: Male

DRUGS (7)
  1. IMATINIB [Suspect]
     Active Substance: IMATINIB
     Indication: Acute lymphocytic leukaemia
     Route: 048
     Dates: start: 20210420
  2. CALTRATE+D [Concomitant]
  3. IMATINIB MESYLATE [Concomitant]
     Active Substance: IMATINIB MESYLATE
  4. JAKAFI [Concomitant]
     Active Substance: RUXOLITINIB
  5. PREDNISONE [Concomitant]
     Active Substance: PREDNISONE
  6. TENOFOVIR [Concomitant]
     Active Substance: TENOFOVIR
  7. TENOFOVIR DISOPROXIL FUMARATE [Concomitant]
     Active Substance: TENOFOVIR DISOPROXIL FUMARATE

REACTIONS (7)
  - Arthralgia [None]
  - Arthralgia [None]
  - Weight increased [None]
  - Fluid retention [None]
  - Fatigue [None]
  - Cardiac operation [None]
  - Therapy interrupted [None]

NARRATIVE: CASE EVENT DATE: 20210922
